FAERS Safety Report 16907211 (Version 1)
Quarter: 2019Q4

REPORT INFORMATION
  Report Type: Spontaneous
  Country: RU (occurrence: RU)
  Receive Date: 20191011
  Receipt Date: 20191011
  Transmission Date: 20200122
  Serious: Yes (Other)
  Sender: FDA-Public Use
  Company Number: RU-GLAXOSMITHKLINE-RU2019EME177563

PATIENT

DRUGS (6)
  1. IPRATROPIUM BROMIDE/FENOTEROL HYDROBROMIDE [Suspect]
     Active Substance: FENOTEROL HYDROBROMIDE\IPRATROPIUM BROMIDE
     Indication: RESPIRATORY TRACT INFECTION
     Dosage: UNK, 12 DROPS + 2 ML OF PHYSIOLOGICAL SALINE 3 TIMES PER DAY
     Route: 055
  2. ZINNAT [Suspect]
     Active Substance: CEFUROXIME
     Indication: RESPIRATORY TRACT INFECTION
     Dosage: UNK
     Route: 048
  3. BUDESONIDE. [Suspect]
     Active Substance: BUDESONIDE
     Indication: RESPIRATORY TRACT INFECTION
     Dosage: 250 UG, BID
  4. IPRATROPIUM BROMIDE/FENOTEROL HYDROBROMIDE [Suspect]
     Active Substance: FENOTEROL HYDROBROMIDE\IPRATROPIUM BROMIDE
     Indication: PYREXIA
  5. ZINNAT [Suspect]
     Active Substance: CEFUROXIME
     Indication: PYREXIA
  6. BUDESONIDE. [Suspect]
     Active Substance: BUDESONIDE
     Indication: PYREXIA

REACTIONS (3)
  - Pathogen resistance [Unknown]
  - Drug resistance [Unknown]
  - Drug ineffective [Unknown]
